FAERS Safety Report 7015149-7 (Version None)
Quarter: 2010Q3

REPORT INFORMATION
  Report Type: 
  Country: None (occurrence: None)
  Receive Date: 20100927
  Receipt Date: 20100428
  Transmission Date: 20110219
  Serious: No
  Sender: FDA-Public Use
  Company Number: US-ASTRAZENECA-2010SE19164

PATIENT
  Age: 74 Year
  Sex: Female
  Weight: 56.2 kg

DRUGS (11)
  1. ARIMIDEX [Suspect]
     Indication: BREAST CANCER
     Route: 048
     Dates: start: 20080601
  2. ASPIRIN [Concomitant]
  3. CALCIUM WITH D [Concomitant]
  4. ADVIL PM [Concomitant]
  5. VIT D [Concomitant]
  6. LOZOL [Concomitant]
  7. SYNTHROID [Concomitant]
  8. TOPROL-XL [Concomitant]
  9. PRILOSEC [Concomitant]
  10. ACTONEL GENERIC [Concomitant]
  11. SIMVASTATIN [Concomitant]

REACTIONS (1)
  - GINGIVAL BLEEDING [None]
